FAERS Safety Report 10214124 (Version 1)
Quarter: 2014Q2

REPORT INFORMATION
  Report Type: Report from Study
  Country: US (occurrence: US)
  Receive Date: 20140603
  Receipt Date: 20140603
  Transmission Date: 20141212
  Serious: Yes (Hospitalization)
  Sender: FDA-Public Use
  Company Number: US-TEVA-485153USA

PATIENT
  Age: 41 Year
  Sex: Female

DRUGS (1)
  1. COPAXONE 40 MG [Suspect]
     Indication: MULTIPLE SCLEROSIS
     Dates: start: 20140512

REACTIONS (5)
  - Vomiting [Unknown]
  - Retching [Unknown]
  - Chills [Unknown]
  - Pyrexia [Unknown]
  - Chest discomfort [Unknown]
